FAERS Safety Report 8353299-3 (Version None)
Quarter: 2012Q2

REPORT INFORMATION
  Report Type: 
  Country: None (occurrence: None)
  Receive Date: 20120511
  Receipt Date: 20120504
  Transmission Date: 20120825
  Serious: Yes (Hospitalization, Other)
  Sender: FDA-Public Use
  Company Number: US-BAYER-2011-118982

PATIENT
  Age: 27 Year
  Sex: Female
  Weight: 65.76 kg

DRUGS (7)
  1. IBUPROFEN [Concomitant]
     Dosage: UNK UNK, PRN
     Dates: start: 19940101
  2. YAZ [Suspect]
     Indication: PREMENSTRUAL SYNDROME
     Dosage: UNK
     Route: 048
     Dates: start: 20080101, end: 20090101
  3. LORTAB [Concomitant]
  4. PRILOSEC [Concomitant]
  5. YAZ [Suspect]
  6. ZANTAC [Concomitant]
  7. ZEGERID [Concomitant]

REACTIONS (7)
  - BILIARY DYSKINESIA [None]
  - EMOTIONAL DISTRESS [None]
  - DYSPEPSIA [None]
  - CHOLECYSTITIS CHRONIC [None]
  - GASTROOESOPHAGEAL REFLUX DISEASE [None]
  - PAIN [None]
  - GALLBLADDER DISORDER [None]
